FAERS Safety Report 25077574 (Version 1)
Quarter: 2025Q1

REPORT INFORMATION
  Report Type: Spontaneous
  Country: JP (occurrence: JP)
  Receive Date: 20250314
  Receipt Date: 20250314
  Transmission Date: 20250409
  Serious: Yes (Hospitalization, Other)
  Sender: ELI LILLY AND COMPANY
  Company Number: JP-ELI_LILLY_AND_COMPANY-JP202503005482

PATIENT
  Age: 20 Year
  Sex: Female

DRUGS (2)
  1. INSULIN LISPRO [Suspect]
     Active Substance: INSULIN LISPRO
     Indication: Type 1 diabetes mellitus
     Route: 058
  2. INSULIN DEGLUDEC [Suspect]
     Active Substance: INSULIN DEGLUDEC
     Indication: Type 1 diabetes mellitus
     Route: 065

REACTIONS (5)
  - Suicide attempt [Unknown]
  - Suicidal ideation [Unknown]
  - Hypokalaemia [Unknown]
  - Blood glucose decreased [Unknown]
  - Overdose [Unknown]
